FAERS Safety Report 16192844 (Version 3)
Quarter: 2019Q4

REPORT INFORMATION
  Report Type: Spontaneous
  Country: SE (occurrence: SE)
  Receive Date: 20190412
  Receipt Date: 20191204
  Transmission Date: 20200122
  Serious: Yes (Death)
  Sender: FDA-Public Use
  Company Number: SE-ROCHE-2302582

PATIENT
  Age: 40 Year
  Sex: Male
  Weight: 62 kg

DRUGS (1)
  1. MABTHERA [Suspect]
     Active Substance: RITUXIMAB
     Indication: MULTIPLE SCLEROSIS
     Route: 065
     Dates: start: 20150910, end: 20190530

REACTIONS (5)
  - Off label use [Unknown]
  - Intentional product use issue [Unknown]
  - Gallbladder cancer [Fatal]
  - Cholangiocarcinoma [Fatal]
  - Metastases to lymph nodes [Fatal]

NARRATIVE: CASE EVENT DATE: 201512
